FAERS Safety Report 8299660-7 (Version None)
Quarter: 2012Q2

REPORT INFORMATION
  Report Type: 
  Country: None (occurrence: None)
  Receive Date: 20120419
  Receipt Date: 20120412
  Transmission Date: 20120825
  Serious: Yes (Hospitalization, Other)
  Sender: FDA-Public Use
  Company Number: CA-ELI_LILLY_AND_COMPANY-CA201204004361

PATIENT
  Age: 73 Year
  Sex: Female

DRUGS (3)
  1. INDERAL [Concomitant]
  2. FORTEO [Suspect]
     Indication: OSTEOPOROSIS
     Dosage: 20 UG, QD
     Route: 058
     Dates: start: 20110113
  3. LIPITOR [Concomitant]

REACTIONS (3)
  - NEOPLASM MALIGNANT [None]
  - NAUSEA [None]
  - APHAGIA [None]
